FAERS Safety Report 13394597 (Version 2)
Quarter: 2017Q2

REPORT INFORMATION
  Report Type: Report from Study
  Country: US (occurrence: US)
  Receive Date: 20170403
  Receipt Date: 20170421
  Transmission Date: 20170830
  Serious: Yes (Other)
  Sender: FDA-Public Use
  Company Number: US-ROCHE-1911504

PATIENT
  Sex: Female
  Weight: 74.91 kg

DRUGS (11)
  1. PREDNISONE. [Concomitant]
     Active Substance: PREDNISONE
     Route: 065
  2. GUAIFENESIN DM [Concomitant]
     Active Substance: DEXTROMETHORPHAN\DEXTROMETHORPHAN HYDROBROMIDE\GUAIFENESIN
     Dosage: 10MG-100MG/5 ML ORAL LIQUID
     Route: 065
  3. LEVOTHYROXINE. [Concomitant]
     Active Substance: LEVOTHYROXINE
     Route: 065
     Dates: start: 20151014
  4. QVAR [Concomitant]
     Active Substance: BECLOMETHASONE DIPROPIONATE
     Route: 065
     Dates: start: 20160303
  5. POTASSIUM CHLORIDE. [Concomitant]
     Active Substance: POTASSIUM CHLORIDE
     Route: 065
     Dates: start: 20160308
  6. FUROSEMIDE. [Concomitant]
     Active Substance: FUROSEMIDE
     Route: 065
     Dates: start: 20160311
  7. ESBRIET [Suspect]
     Active Substance: PIRFENIDONE
     Indication: LUNG DISORDER
     Dosage: 2 CAPSULES 3X A DAY
     Route: 048
     Dates: start: 201701, end: 201702
  8. LEVAQUIN [Concomitant]
     Active Substance: LEVOFLOXACIN
     Route: 065
  9. LASIX [Concomitant]
     Active Substance: FUROSEMIDE
     Route: 065
     Dates: start: 20160308
  10. ESBRIET [Suspect]
     Active Substance: PIRFENIDONE
     Dosage: 2 CAPSULES 3X A DAY
     Route: 048
     Dates: start: 201702, end: 201702
  11. ESBRIET [Suspect]
     Active Substance: PIRFENIDONE
     Indication: IDIOPATHIC PULMONARY FIBROSIS
     Dosage: 3 CAPSULES 3 TIMES A DAY
     Route: 048
     Dates: start: 201605, end: 201701

REACTIONS (12)
  - General physical health deterioration [Unknown]
  - Decreased appetite [Recovering/Resolving]
  - Rash [Recovering/Resolving]
  - Condition aggravated [Not Recovered/Not Resolved]
  - Terminal state [Unknown]
  - Urticaria [Recovering/Resolving]
  - Oxygen saturation decreased [Unknown]
  - Rash [Unknown]
  - Insomnia [Unknown]
  - Dry mouth [Unknown]
  - Insomnia [Recovering/Resolving]
  - Movement disorder [Not Recovered/Not Resolved]
